FAERS Safety Report 22078098 (Version 1)
Quarter: 2023Q1

REPORT INFORMATION
  Report Type: Spontaneous
  Country: US (occurrence: None)
  Receive Date: 20230308
  Receipt Date: 20230308
  Transmission Date: 20230418
  Serious: Yes (Other)
  Sender: FDA-Public Use
  Company Number: None

PATIENT
  Age: 66 Year
  Sex: Female
  Weight: 85.5 kg

DRUGS (7)
  1. BUPRENORPHINE [Suspect]
     Active Substance: BUPRENORPHINE
     Indication: Pain
     Dosage: OTHER QUANTITY : 1 TABLET(S);?FREQUENCY : 3 TIMES A DAY;?
     Route: 060
     Dates: start: 20230216
  2. Buprenorphine 8 mg TID (alternate buccal route) [Concomitant]
  3. DIAZEPAM [Concomitant]
     Active Substance: DIAZEPAM
  4. COMPAZINE [Concomitant]
     Active Substance: PROCHLORPERAZINE MALEATE
  5. Triamtarine/HCTZ [Concomitant]
  6. Climara transderm patch [Concomitant]
  7. MTV [Concomitant]

REACTIONS (16)
  - Product substitution issue [None]
  - Product use complaint [None]
  - Product size issue [None]
  - Product solubility abnormal [None]
  - Reaction to excipient [None]
  - Injury [None]
  - Salivary gland enlargement [None]
  - Salivary gland pain [None]
  - Mucosal excoriation [None]
  - Incorrect route of product administration [None]
  - Oral mucosal exfoliation [None]
  - Oral disorder [None]
  - Product contamination [None]
  - Wrong technique in product usage process [None]
  - Inadequate analgesia [None]
  - Product contamination chemical [None]

NARRATIVE: CASE EVENT DATE: 20230220
